FAERS Safety Report 5781436-3 (Version None)
Quarter: 2008Q2

REPORT INFORMATION
  Report Type: 
  Country: None (occurrence: None)
  Receive Date: 20080623
  Receipt Date: 20080312
  Transmission Date: 20081010
  Serious: Yes (Disabling)
  Sender: FDA-Public Use
  Company Number: US-ASTRAZENECA-2008UW00042

PATIENT
  Age: 25299 Day
  Sex: Female
  Weight: 59 kg

DRUGS (7)
  1. ENTOCORT EC [Suspect]
     Indication: CROHN'S DISEASE
     Route: 048
     Dates: start: 20071212
  2. LEVOXYL [Concomitant]
  3. PROZAC [Concomitant]
  4. LIPITOR [Concomitant]
  5. ESTRADIOL [Concomitant]
  6. PREMARIN [Concomitant]
  7. FIBERCON [Concomitant]

REACTIONS (1)
  - RASH [None]
